FAERS Safety Report 19360865 (Version 2)
Quarter: 2022Q2

REPORT INFORMATION
  Report Type: Spontaneous
  Country: US (occurrence: US)
  Receive Date: 20210601
  Receipt Date: 20220427
  Transmission Date: 20220721
  Serious: No
  Sender: FDA-Public Use
  Company Number: US-PFIZER INC-2021215808

PATIENT
  Age: 53 Year
  Sex: Female

DRUGS (2)
  1. XELJANZ [Suspect]
     Active Substance: TOFACITINIB CITRATE
     Indication: Rheumatoid arthritis
     Dosage: 5 MG, 2X/DAY
     Route: 048
     Dates: start: 20201225
  2. XELJANZ [Suspect]
     Active Substance: TOFACITINIB CITRATE
     Dosage: 5 MG, 2X/DAY
     Route: 048
     Dates: start: 20210419

REACTIONS (9)
  - Herpes zoster [Unknown]
  - Arthralgia [Unknown]
  - Musculoskeletal stiffness [Unknown]
  - Erythema [Unknown]
  - Mobility decreased [Unknown]
  - Back disorder [Unknown]
  - Back pain [Unknown]
  - Condition aggravated [Unknown]
  - Arthrodesis [Unknown]

NARRATIVE: CASE EVENT DATE: 20210301
